FAERS Safety Report 19748579 (Version 1)
Quarter: 2021Q3

REPORT INFORMATION
  Report Type: Spontaneous
  Country: US (occurrence: US)
  Receive Date: 20210825
  Receipt Date: 20210825
  Transmission Date: 20211014
  Serious: Yes (Hospitalization)
  Sender: FDA-Public Use
  Company Number: None

PATIENT
  Sex: Female

DRUGS (6)
  1. VIGABATRIN. [Suspect]
     Active Substance: VIGABATRIN
     Indication: PRODUCT USED FOR UNKNOWN INDICATION
     Route: 048
     Dates: start: 20210605
  2. DIVALPROEX [Concomitant]
     Active Substance: DIVALPROEX SODIUM
  3. CLOBAZAM. [Concomitant]
     Active Substance: CLOBAZAM
  4. LEVETIRACETA [Concomitant]
     Active Substance: LEVETIRACETAM
  5. SABRIL [Concomitant]
     Active Substance: VIGABATRIN
  6. CARBAMAZEPIN [Concomitant]
     Active Substance: CARBAMAZEPINE

REACTIONS (2)
  - Therapy change [None]
  - Epilepsy [None]
